FAERS Safety Report 15084133 (Version 3)
Quarter: 2018Q4

REPORT INFORMATION
  Report Type: Spontaneous
  Country: GR (occurrence: GR)
  Receive Date: 20180628
  Receipt Date: 20181002
  Transmission Date: 20190204
  Serious: Yes (Other)
  Sender: FDA-Public Use
  Company Number: GR-MYLANLABS-2018M1046766

PATIENT
  Age: 70 Year
  Sex: Female

DRUGS (1)
  1. ROSUVASTATIN MYLAN [Suspect]
     Active Substance: ROSUVASTATIN CALCIUM
     Indication: PRODUCT USED FOR UNKNOWN INDICATION
     Dosage: UNK

REACTIONS (2)
  - Anaphylactic shock [Unknown]
  - Skin mass [Recovering/Resolving]
